FAERS Safety Report 16901593 (Version 1)
Quarter: 2019Q4

REPORT INFORMATION
  Report Type: Report from Study
  Country: None (occurrence: US)
  Receive Date: 20191010
  Receipt Date: 20191010
  Transmission Date: 20200122
  Serious: Yes (Hospitalization, Other)
  Sender: FDA-Public Use
  Company Number: US-ABBVIE-19K-163-2912792-00

PATIENT
  Age: 19 Year
  Sex: Female

DRUGS (2)
  1. HUMIRA [Suspect]
     Active Substance: ADALIMUMAB
     Dosage: CITRATE FREE
     Route: 058
     Dates: start: 20190308
  2. HUMIRA [Suspect]
     Active Substance: ADALIMUMAB
     Indication: CROHN^S DISEASE
     Dosage: CITRATE FREE
     Route: 058
     Dates: start: 20190308, end: 2019

REACTIONS (21)
  - Exposure via skin contact [Unknown]
  - Nausea [Unknown]
  - Sepsis [Unknown]
  - Contusion [Unknown]
  - Ileus paralytic [Unknown]
  - Muscle spasms [Unknown]
  - Hypersomnia [Unknown]
  - Injection site bruising [Unknown]
  - Impaired healing [Unknown]
  - Vision blurred [Unknown]
  - Weight fluctuation [Unknown]
  - Disorientation [Unknown]
  - Hospitalisation [Recovered/Resolved]
  - Palpitations [Unknown]
  - Crohn^s disease [Recovered/Resolved]
  - Intestinal stenosis [Recovered/Resolved]
  - Malaise [Unknown]
  - Intestinal obstruction [Recovered/Resolved]
  - Malaise [Unknown]
  - Incorrect dose administered [Unknown]
  - Tremor [Unknown]

NARRATIVE: CASE EVENT DATE: 2019
